FAERS Safety Report 10662190 (Version 1)
Quarter: 2014Q4

REPORT INFORMATION
  Report Type: Spontaneous
  Country: US (occurrence: US)
  Receive Date: 20141218
  Receipt Date: 20141218
  Transmission Date: 20150529
  Serious: Yes (Hospitalization, Disabling, Other)
  Sender: FDA-Public Use
  Company Number: US-009507513-1412USA007959

PATIENT
  Age: 50 Year
  Sex: Male
  Weight: 127 kg

DRUGS (9)
  1. POTASSIUM CHLORIDE. [Suspect]
     Active Substance: POTASSIUM CHLORIDE
  2. LASIX [Suspect]
     Active Substance: FUROSEMIDE
  3. DYAZIDE [Suspect]
     Active Substance: HYDROCHLOROTHIAZIDE\TRIAMTERENE
  4. CARDIZEM [Suspect]
     Active Substance: DILTIAZEM HYDROCHLORIDE
     Indication: HEART RATE IRREGULAR
     Dosage: 120 MG, UNK
     Route: 048
  5. ASCORBIC ACID. [Concomitant]
     Active Substance: ASCORBIC ACID
  6. HYZAAR [Suspect]
     Active Substance: HYDROCHLOROTHIAZIDE\LOSARTAN POTASSIUM
     Route: 048
  7. SOTALOL HYDROCHLORIDE. [Suspect]
     Active Substance: SOTALOL HYDROCHLORIDE
     Indication: HEART RATE IRREGULAR
  8. LANOXIN [Suspect]
     Active Substance: DIGOXIN
  9. VITAMINS (UNSPECIFIED) [Concomitant]
     Active Substance: VITAMINS

REACTIONS (34)
  - Pulmonary oedema [Recovered/Resolved]
  - Hyponatraemia [Unknown]
  - Peripheral venous disease [Unknown]
  - Restless legs syndrome [Unknown]
  - Cholelithiasis [Unknown]
  - Oedema peripheral [Unknown]
  - Atrial fibrillation [Unknown]
  - Bradycardia [Unknown]
  - Chronic obstructive pulmonary disease [Unknown]
  - Back pain [Unknown]
  - Rhinitis allergic [Unknown]
  - Aspiration [Unknown]
  - Pickwickian syndrome [Unknown]
  - Testicular cancer metastatic [Unknown]
  - Loss of consciousness [Recovered/Resolved]
  - Bronchitis [Unknown]
  - Restrictive pulmonary disease [Unknown]
  - Subcutaneous haematoma [Unknown]
  - Urinary hesitation [Recovering/Resolving]
  - Diabetes mellitus inadequate control [Unknown]
  - Acute kidney injury [Unknown]
  - Dehydration [Unknown]
  - Pulmonary embolism [Unknown]
  - Diabetic retinopathy [Unknown]
  - Dyslipidaemia [Unknown]
  - Electrocardiogram ST segment elevation [Unknown]
  - Hypovolaemia [Unknown]
  - Atrial fibrillation [Recovered/Resolved]
  - Pulmonary hypertension [Unknown]
  - Stasis dermatitis [Unknown]
  - Musculoskeletal chest pain [Unknown]
  - Hyperkalaemia [Recovered/Resolved]
  - Depression [Unknown]
  - Endodontic procedure [Unknown]

NARRATIVE: CASE EVENT DATE: 2012
